FAERS Safety Report 11074312 (Version 1)
Quarter: 2015Q2

REPORT INFORMATION
  Report Type: Spontaneous
  Country: US (occurrence: None)
  Receive Date: 20150428
  Receipt Date: 20150428
  Transmission Date: 20150821
  Serious: Yes (Hospitalization)
  Sender: FDA-Public Use
  Company Number: None

PATIENT
  Age: 64 Year
  Sex: Female
  Weight: 51.71 kg

DRUGS (11)
  1. PROTONICS [Concomitant]
  2. OLMESARTIN [Concomitant]
  3. PROZAC [Concomitant]
     Active Substance: FLUOXETINE HYDROCHLORIDE
  4. PLAVIX [Concomitant]
     Active Substance: CLOPIDOGREL BISULFATE
  5. HERCEPTIN [Suspect]
     Active Substance: TRASTUZUMAB
     Indication: INVASIVE DUCTAL BREAST CARCINOMA
     Route: 042
     Dates: start: 20150123, end: 20150320
  6. XANAX [Concomitant]
     Active Substance: ALPRAZOLAM
  7. HERCEPTIN [Suspect]
     Active Substance: TRASTUZUMAB
     Indication: HER-2 POSITIVE BREAST CANCER
     Route: 042
     Dates: start: 20150123, end: 20150320
  8. SIMVASTIN [Concomitant]
     Active Substance: SIMVASTATIN
  9. METFORMIN [Concomitant]
     Active Substance: METFORMIN HYDROCHLORIDE
  10. HERCEPTIN [Suspect]
     Active Substance: TRASTUZUMAB
     Indication: OESTROGEN RECEPTOR ASSAY POSITIVE
     Route: 042
     Dates: start: 20150123, end: 20150320
  11. VERAPAMIL [Concomitant]
     Active Substance: VERAPAMIL HYDROCHLORIDE

REACTIONS (20)
  - Nasal congestion [None]
  - Diarrhoea [None]
  - Hypoaesthesia [None]
  - Fatigue [None]
  - White blood cell count decreased [None]
  - Blood potassium decreased [None]
  - Nausea [None]
  - Rash [None]
  - Skin exfoliation [None]
  - Red blood cell count decreased [None]
  - Weight decreased [None]
  - Haemorrhage [None]
  - Vomiting [None]
  - Dysgeusia [None]
  - Blood magnesium decreased [None]
  - Headache [None]
  - Platelet count decreased [None]
  - Dehydration [None]
  - Peripheral coldness [None]
  - Epistaxis [None]

NARRATIVE: CASE EVENT DATE: 20150320
